FAERS Safety Report 5142175-5 (Version None)
Quarter: 2006Q4

REPORT INFORMATION
  Report Type: 
  Country: None (occurrence: None)
  Receive Date: 20061102
  Receipt Date: 20060303
  Transmission Date: 20070319
  Serious: Yes (Other)
  Sender: FDA-Public Use
  Company Number: IE-AVENTIS-200612524GDDC

PATIENT
  Sex: Male
  Weight: 5.19 kg

DRUGS (5)
  1. LANTUS [Suspect]
     Indication: DIABETES MELLITUS INSULIN-DEPENDENT
     Route: 064
     Dates: end: 20060829
  2. LANTUS [Suspect]
     Route: 065
  3. HUMALOG                            /00030501/ [Suspect]
     Indication: DIABETES MELLITUS INSULIN-DEPENDENT
     Route: 064
     Dates: end: 20060704
  4. NOVORAPID [Suspect]
     Route: 064
     Dates: end: 20060829
  5. NOVORAPID [Suspect]
     Route: 065

REACTIONS (4)
  - CAESAREAN SECTION [None]
  - DRUG EXPOSURE DURING PREGNANCY [None]
  - SEPSIS [None]
  - TRANSIENT TACHYPNOEA OF THE NEWBORN [None]
